FAERS Safety Report 9519793 (Version 1)
Quarter: 2013Q1

REPORT INFORMATION
  Report Type: Spontaneous
  Country: US (occurrence: None)
  Receive Date: 20130305
  Receipt Date: 20130305
  Transmission Date: 20140127
  Serious: Yes (Hospitalization)
  Sender: FDA-Public Use
  Company Number: 163-21880-12112657

PATIENT
  Age: 72 Year
  Sex: Male
  Weight: 75.1 kg

DRUGS (10)
  1. REVLIMID [Suspect]
     Indication: MYELODYSPLASTIC SYNDROME
     Dosage: 10 MG, 1 IN 1 D, PO
     Route: 048
     Dates: start: 201205
  2. REVLIMID [Suspect]
     Indication: MYELOID LEUKAEMIA
     Dosage: 10 MG, 1 IN 1 D, PO
     Route: 048
     Dates: start: 201205
  3. VIDAZA [Suspect]
     Dosage: IV
     Route: 042
  4. ACETAMINOPHEN (PARACETAMOL) (UNKNOWN)? [Concomitant]
  5. ACYCLOVIR (ACICLOVIR) (UNKNOWN) [Concomitant]
  6. CHOLECALCIFEROL (COLECALCIFEROL) (UNKNOWN) [Concomitant]
  7. FLUCONAZOLE (FLUCONCAZOLE) (UNKNOWN) [Concomitant]
  8. METRONIDAZOLE (METRONIDAZOLE) (UNKNOWN) [Concomitant]
  9. NITROGLYCERINE (GLYCERYL TRINITRATE) (TABLETS) [Concomitant]
  10. SIMVASTATIN [Concomitant]

REACTIONS (2)
  - Chest pain [None]
  - No therapeutic response [None]
